FAERS Safety Report 5794200-6 (Version None)
Quarter: 2008Q2

REPORT INFORMATION
  Report Type: 
  Country: None (occurrence: None)
  Receive Date: 20080627
  Receipt Date: 20080613
  Transmission Date: 20081010
  Serious: Yes (Death)
  Sender: FDA-Public Use
  Company Number: JP-GENENTECH-260477

PATIENT
  Sex: Male

DRUGS (11)
  1. BEVACIZUMAB [Suspect]
     Indication: COLON CANCER
     Dosage: 5 MG/KG, UNK
     Route: 041
     Dates: start: 20070903, end: 20080219
  2. HEPARIN SODIUM [Suspect]
     Indication: DRUG USE FOR UNKNOWN INDICATION
     Route: 042
     Dates: start: 20080508
  3. OXALIPLATIN [Suspect]
     Indication: METASTASES TO LIVER
     Dosage: UNK, UNK
     Route: 041
     Dates: start: 20070101
  4. OXALIPLATIN [Suspect]
     Indication: COLON CANCER
  5. FLUOROURACIL [Suspect]
     Indication: METASTASES TO LIVER
     Dosage: UNK, UNK
     Route: 042
     Dates: start: 20070601
  6. FLUOROURACIL [Suspect]
     Indication: COLON CANCER
  7. LEUCOVORIN CALCIUM [Suspect]
     Indication: METASTASES TO LIVER
     Dosage: UNK, UNK
     Route: 041
     Dates: start: 20070601, end: 20080219
  8. LEUCOVORIN CALCIUM [Suspect]
     Indication: COLON CANCER
  9. IRINOTECAN HCL [Suspect]
     Indication: COLON CANCER
     Dosage: 150 MG/M2, UNK
     Route: 041
     Dates: start: 20080109, end: 20080219
  10. UROKINASE [Suspect]
     Indication: DRUG USE FOR UNKNOWN INDICATION
     Dosage: UNK, UNK
     Dates: start: 20080508
  11. ADALAT [Concomitant]
     Indication: DRUG USE FOR UNKNOWN INDICATION
     Dates: start: 20060530

REACTIONS (4)
  - GASTROINTESTINAL HAEMORRHAGE [None]
  - LUNG DISORDER [None]
  - PNEUMONIA [None]
  - VENOUS THROMBOSIS [None]
